FAERS Safety Report 21861361 (Version 4)
Quarter: 2023Q2

REPORT INFORMATION
  Report Type: Spontaneous
  Country: JP (occurrence: JP)
  Receive Date: 20230113
  Receipt Date: 20230504
  Transmission Date: 20230722
  Serious: Yes (Hospitalization, Other)
  Sender: FDA-Public Use
  Company Number: JP-BRISTOL-MYERS SQUIBB COMPANY-2023-002524

PATIENT
  Age: 58 Year
  Sex: Female
  Weight: 49.4 kg

DRUGS (9)
  1. YERVOY [Suspect]
     Active Substance: IPILIMUMAB
     Indication: Malignant melanoma
     Dosage: NUMBER OF ADMINISTRATION:ONE TIME
     Route: 041
     Dates: start: 20210909, end: 20210930
  2. OPDIVO [Suspect]
     Active Substance: NIVOLUMAB
     Indication: Malignant melanoma
     Route: 041
     Dates: start: 20200123, end: 20210121
  3. OPDIVO [Suspect]
     Active Substance: NIVOLUMAB
     Dosage: NUMBER OF ADMINISTRATION:1
     Route: 041
     Dates: start: 20210909, end: 20210930
  4. KEYTRUDA [Suspect]
     Active Substance: PEMBROLIZUMAB
     Indication: Malignant melanoma
     Dates: start: 20210629, end: 20210812
  5. NEXIUM [Concomitant]
     Active Substance: ESOMEPRAZOLE MAGNESIUM
     Indication: Product used for unknown indication
     Dosage: NUMBER OF ADMINISTRATION:1
     Route: 048
  6. RAMOSETRON HYDROCHLORIDE [Concomitant]
     Active Substance: RAMOSETRON HYDROCHLORIDE
     Indication: Product used for unknown indication
     Dosage: NUMBER OF ADMINISTRATION:1
     Route: 048
  7. MIYA-BM [Concomitant]
     Active Substance: CLOSTRIDIUM BUTYRICUM SPORES STRAIN M-55
     Indication: Product used for unknown indication
     Dosage: NUMBER OF ADMINISTRATION:3
     Route: 048
  8. REBAMIPIDE [Concomitant]
     Active Substance: REBAMIPIDE
     Indication: Product used for unknown indication
     Dosage: NUMBER OF ADMINISTRATION:2
     Route: 048
  9. LOXOPROFEN [Concomitant]
     Active Substance: LOXOPROFEN
     Indication: Product used for unknown indication
     Dosage: NUMBER OF ADMINISTRATION:2
     Route: 048

REACTIONS (4)
  - Oesophageal disorder [Recovered/Resolved]
  - Gastritis [Recovered/Resolved]
  - Immune-mediated enterocolitis [Unknown]
  - Cough [Unknown]

NARRATIVE: CASE EVENT DATE: 20211002
